FAERS Safety Report 11061979 (Version 1)
Quarter: 2015Q2

REPORT INFORMATION
  Report Type: Spontaneous
  Country: US (occurrence: US)
  Receive Date: 20150424
  Receipt Date: 20150424
  Transmission Date: 20150821
  Serious: Yes (Death, Other)
  Sender: FDA-Public Use
  Company Number: US-JNJFOC-20150413575

PATIENT

DRUGS (1)
  1. ABCIXIMAB [Suspect]
     Active Substance: ABCIXIMAB
     Indication: THROMBOSIS PROPHYLAXIS
     Route: 065

REACTIONS (3)
  - Contraindication to medical treatment [Unknown]
  - Haemorrhage [Unknown]
  - Death [Fatal]
